FAERS Safety Report 8885013 (Version 1)
Quarter: 2012Q4

REPORT INFORMATION
  Report Type: Report from Study
  Country: CA (occurrence: CA)
  Receive Date: 20121102
  Receipt Date: 20121102
  Transmission Date: 20130627
  Serious: Yes (Other)
  Sender: FDA-Public Use
  Company Number: CA-ABBOTT-12P-028-1000145-00

PATIENT
  Sex: Female

DRUGS (2)
  1. HUMIRA [Suspect]
     Indication: PSORIATIC ARTHROPATHY
     Dates: start: 20080211
  2. CHEMOTHERAPY (UNKNOWN) [Concomitant]
     Indication: NEOPLASM MALIGNANT

REACTIONS (1)
  - Neoplasm malignant [Unknown]
